FAERS Safety Report 5160692-9 (Version None)
Quarter: 2006Q4

REPORT INFORMATION
  Report Type: 
  Country: None (occurrence: None)
  Receive Date: 20060918
  Receipt Date: 20060515
  Transmission Date: 20070319
  Serious: Yes (Hospitalization)
  Sender: FDA-Public Use
  Company Number: 2006-BP-05418RO

PATIENT
  Age: 58 Year
  Sex: Male
  Weight: 78 kg

DRUGS (2)
  1. DEXAMETHASONE [Suspect]
     Indication: BRAIN NEOPLASM MALIGNANT
     Dosage: HIGH OF 32 MG/DAY THEN TAPER (4 MG), PO
     Route: 048
     Dates: start: 20060510, end: 20060512
  2. GLIPIZIDE [Concomitant]

REACTIONS (1)
  - BLOOD GLUCOSE INCREASED [None]
